FAERS Safety Report 7780093-4 (Version None)
Quarter: 2011Q3

REPORT INFORMATION
  Report Type: 
  Country: None (occurrence: None)
  Receive Date: 20110927
  Receipt Date: 20110426
  Transmission Date: 20111222
  Serious: No
  Sender: FDA-Public Use
  Company Number: US-ASTRAZENECA-2011SE23844

PATIENT
  Age: 47 Year
  Sex: Female

DRUGS (1)
  1. SEROQUEL [Suspect]
     Indication: BIPOLAR DISORDER
     Route: 048
     Dates: start: 20050101

REACTIONS (6)
  - DIARRHOEA [None]
  - DRUG DOSE OMISSION [None]
  - HEADACHE [None]
  - PANIC ATTACK [None]
  - VOMITING [None]
  - DRUG WITHDRAWAL SYNDROME [None]
